FAERS Safety Report 21330000 (Version 2)
Quarter: 2022Q3

REPORT INFORMATION
  Report Type: Spontaneous
  Country: JP (occurrence: JP)
  Receive Date: 20220913
  Receipt Date: 20220923
  Transmission Date: 20221027
  Serious: Yes (Other)
  Sender: FDA-Public Use
  Company Number: JP-MSD-2209JPN000822J

PATIENT
  Age: 2 Month
  Sex: Male
  Weight: 4.2 kg

DRUGS (2)
  1. ROCURONIUM BROMIDE [Suspect]
     Active Substance: ROCURONIUM BROMIDE
     Indication: General anaesthesia
     Dosage: 4 MILLIGRAM
     Route: 051
  2. BRIDION [Suspect]
     Active Substance: SUGAMMADEX
     Dosage: 20 MILLIGRAM
     Route: 051

REACTIONS (3)
  - Hypoventilation [Recovering/Resolving]
  - Muscle spasms [Recovering/Resolving]
  - Product administered to patient of inappropriate age [Unknown]
